FAERS Safety Report 8006817-9 (Version None)
Quarter: 2011Q4

REPORT INFORMATION
  Report Type: 
  Country: None (occurrence: None)
  Receive Date: 20111123
  Receipt Date: 20110822
  Transmission Date: 20120403
  Serious: No
  Sender: FDA-Public Use
  Company Number: 332732

PATIENT
  Age: 58 Year
  Sex: Female

DRUGS (3)
  1. VICTOZA [Suspect]
     Indication: TYPE 2 DIABETES MELLITUS
     Dosage: , SUBCUTANEOUS
     Route: 058
  2. AMARYL [Concomitant]
  3. METFORMIN HCL [Concomitant]

REACTIONS (7)
  - ABDOMINAL PAIN UPPER [None]
  - WEIGHT DECREASED [None]
  - NAUSEA [None]
  - HYPOGLYCAEMIA [None]
  - DYSPHAGIA [None]
  - DECREASED APPETITE [None]
  - HEADACHE [None]
